FAERS Safety Report 8427834-0 (Version None)
Quarter: 2012Q2

REPORT INFORMATION
  Report Type: 
  Country: None (occurrence: None)
  Receive Date: 20120323
  Receipt Date: 20111129
  Transmission Date: 20120825
  Serious: Yes (Other)
  Sender: FDA-Public Use
  Company Number: 163-21880-11114164

PATIENT
  Age: 72 Year
  Sex: Male
  Weight: 81.6475 kg

DRUGS (10)
  1. ASPIRIN [Concomitant]
  2. HYDROCODONE [Concomitant]
  3. REVLIMID [Suspect]
     Indication: MULTIPLE MYELOMA
     Dosage: 25 MG, 1 IN 1 D, PO : 15 MG, DAILY X 21 DAYS, PO
     Route: 048
     Dates: start: 20111201
  4. REVLIMID [Suspect]
     Indication: MULTIPLE MYELOMA
     Dosage: 25 MG, 1 IN 1 D, PO : 15 MG, DAILY X 21 DAYS, PO
     Route: 048
     Dates: start: 20100901
  5. CARVEDILOL [Concomitant]
  6. DEXAMETHASONE [Concomitant]
  7. PAROXETINE [Concomitant]
  8. TEMAZEPAM [Concomitant]
  9. NEXIUM [Concomitant]
  10. LORAZEPAM [Concomitant]

REACTIONS (1)
  - CATARACT [None]
